FAERS Safety Report 9410611 (Version 1)
Quarter: 2013Q3

REPORT INFORMATION
  Report Type: Spontaneous
  Country: GB (occurrence: GB)
  Receive Date: 20130719
  Receipt Date: 20130719
  Transmission Date: 20140515
  Serious: Yes (Other)
  Sender: FDA-Public Use
  Company Number: GB-ACTAVIS-2013-12724

PATIENT
  Sex: 0

DRUGS (4)
  1. IBUPROFEN (UNKNOWN) [Suspect]
     Indication: ARTHRALGIA
     Dosage: 400 MG, PRN
     Route: 048
     Dates: start: 2009
  2. CALCIUM CARBONATE [Suspect]
     Indication: BONE DISORDER
     Dosage: UNK, UNKNOWN
     Route: 048
     Dates: start: 2012
  3. SULFASALAZINE [Suspect]
     Indication: RHEUMATOID ARTHRITIS
     Dosage: 1 G, BID
     Route: 048
     Dates: start: 2009
  4. REMICADE [Suspect]
     Indication: RHEUMATOID ARTHRITIS
     Dosage: 3 MG/KG, 1 PER 8 WEEKS
     Route: 042
     Dates: start: 20120614

REACTIONS (3)
  - Abortion spontaneous [Recovered/Resolved]
  - Hyperemesis gravidarum [Unknown]
  - Maternal exposure during pregnancy [Recovered/Resolved]
